FAERS Safety Report 14365334 (Version 9)
Quarter: 2019Q2

REPORT INFORMATION
  Report Type: Spontaneous
  Country: US (occurrence: US)
  Receive Date: 20180108
  Receipt Date: 20190520
  Transmission Date: 20190711
  Serious: Yes (Hospitalization, Other)
  Sender: FDA-Public Use
  Company Number: US-BRISTOL-MYERS SQUIBB COMPANY-BMS-2018-000240

PATIENT
  Sex: Female

DRUGS (1)
  1. ORENCIA [Suspect]
     Active Substance: ABATACEPT
     Indication: RHEUMATOID ARTHRITIS
     Dosage: 125 MG, QWK
     Route: 058
     Dates: start: 201606

REACTIONS (9)
  - Drug ineffective [Unknown]
  - Fatigue [Unknown]
  - Fall [Unknown]
  - Kidney infection [Unknown]
  - Nausea [Unknown]
  - Malaise [Unknown]
  - Pain in extremity [Unknown]
  - Head injury [Unknown]
  - Product dose omission [Unknown]
